FAERS Safety Report 14756618 (Version 1)
Quarter: 2018Q2

REPORT INFORMATION
  Report Type: Spontaneous
  Country: US (occurrence: US)
  Receive Date: 20180413
  Receipt Date: 20180413
  Transmission Date: 20180711
  Serious: No
  Sender: FDA-Public Use
  Company Number: US-GLAXOSMITHKLINE-US2018062430

PATIENT
  Age: 85 Year
  Sex: Female

DRUGS (17)
  1. ISOSORBIDE MONONITRATE. [Concomitant]
     Active Substance: ISOSORBIDE MONONITRATE
  2. MUCINEX [Concomitant]
     Active Substance: GUAIFENESIN
  3. ALPRAZOLAM. [Concomitant]
     Active Substance: ALPRAZOLAM
  4. INCRUSE ELLIPTA [Suspect]
     Active Substance: UMECLIDINIUM BROMIDE
     Indication: CHRONIC OBSTRUCTIVE PULMONARY DISEASE
     Dosage: 1 PUFF(S), QD
     Route: 055
     Dates: start: 201804
  5. SENOKOT [Concomitant]
     Active Substance: SENNOSIDES
  6. CALCIUM [Concomitant]
     Active Substance: CALCIUM
  7. FOSAMAX [Concomitant]
     Active Substance: ALENDRONATE SODIUM
  8. LASIX [Concomitant]
     Active Substance: FUROSEMIDE
  9. SPIRONOLACTONE. [Concomitant]
     Active Substance: SPIRONOLACTONE
  10. FISH OIL [Concomitant]
     Active Substance: FISH OIL
  11. METOPROLOL. [Concomitant]
     Active Substance: METOPROLOL
  12. PEPCID [Concomitant]
     Active Substance: FAMOTIDINE
  13. ALBUTEROL INHALER [Concomitant]
     Active Substance: ALBUTEROL
  14. FIBERCON [Concomitant]
     Active Substance: CALCIUM POLYCARBOPHIL
  15. NITROSTAT [Concomitant]
     Active Substance: NITROGLYCERIN
  16. WARFARIN [Concomitant]
     Active Substance: WARFARIN
  17. BREO ELLIPTA [Suspect]
     Active Substance: FLUTICASONE FUROATE\VILANTEROL TRIFENATATE
     Indication: CHRONIC OBSTRUCTIVE PULMONARY DISEASE
     Dosage: 1 PUFF(S), QD
     Route: 055
     Dates: start: 201804

REACTIONS (5)
  - Nasopharyngitis [Unknown]
  - Cough [Unknown]
  - Increased upper airway secretion [Unknown]
  - Underdose [Unknown]
  - Nasal congestion [Unknown]

NARRATIVE: CASE EVENT DATE: 201804
